FAERS Safety Report 20026447 (Version 2)
Quarter: 2021Q4

REPORT INFORMATION
  Report Type: Spontaneous
  Country: JP (occurrence: JP)
  Receive Date: 20211102
  Receipt Date: 20211114
  Transmission Date: 20220303
  Serious: Yes (Hospitalization, Other)
  Sender: FDA-Public Use
  Company Number: JP-ABBVIE-21K-087-4145487-00

PATIENT
  Age: 71 Year
  Sex: Female

DRUGS (1)
  1. ADALIMUMAB [Suspect]
     Active Substance: ADALIMUMAB
     Indication: Colitis ulcerative
     Route: 058

REACTIONS (6)
  - Myositis [Recovering/Resolving]
  - Fasciitis [Recovering/Resolving]
  - Lupus-like syndrome [Recovering/Resolving]
  - Interstitial lung disease [Recovering/Resolving]
  - Antiphospholipid syndrome [Recovering/Resolving]
  - Autoimmune thyroiditis [Recovering/Resolving]
